FAERS Safety Report 26026255 (Version 2)
Quarter: 2025Q4

REPORT INFORMATION
  Report Type: Report from Study
  Country: CA (occurrence: CA)
  Receive Date: 20251111
  Receipt Date: 20251124
  Transmission Date: 20260118
  Serious: Yes (Other)
  Sender: JOHNSON AND JOHNSON
  Company Number: CA-JNJFOC-20220859499

PATIENT
  Age: 36 Year
  Sex: Female
  Weight: 83 kg

DRUGS (8)
  1. REMICADE [Suspect]
     Active Substance: INFLIXIMAB
     Indication: Crohn^s disease
     Dosage: ON 22-SEP-2023, THE PATIENT RECEIVED 107TH LATEST INFUSION OF 900 MG AND PARTIAL HARVEY-BRADSHAW COM
     Route: 041
     Dates: start: 20230905
  2. REMICADE [Suspect]
     Active Substance: INFLIXIMAB
     Dosage: THERAPY START DATE: 23-MAR-2012
     Route: 041
     Dates: start: 20120323
  3. REMICADE [Suspect]
     Active Substance: INFLIXIMAB
     Dosage: THERAPY START DATE: 23-MAR-2012
     Route: 041
     Dates: start: 20100427
  4. REMICADE [Suspect]
     Active Substance: INFLIXIMAB
     Route: 041
  5. REMICADE [Suspect]
     Active Substance: INFLIXIMAB
     Dosage: 900 MG VIAL ROUNDED UP, EXPIRY: 01-NOV-2025
     Route: 041
  6. REMICADE [Suspect]
     Active Substance: INFLIXIMAB
     Route: 041
  7. REMICADE [Suspect]
     Active Substance: INFLIXIMAB
     Route: 041
  8. REMICADE [Suspect]
     Active Substance: INFLIXIMAB
     Route: 041
     Dates: start: 20160722, end: 20251031

REACTIONS (10)
  - Crohn^s disease [Not Recovered/Not Resolved]
  - Gastrointestinal scarring [Recovering/Resolving]
  - Hernia [Unknown]
  - Scar [Recovering/Resolving]
  - Intestinal operation [Unknown]
  - Intestinal stenosis [Unknown]
  - Off label use [Unknown]
  - Inflammation [Unknown]
  - Drug level decreased [Unknown]
  - Drug ineffective [Unknown]

NARRATIVE: CASE EVENT DATE: 20100427
